FAERS Safety Report 16449518 (Version 1)
Quarter: 2019Q2

REPORT INFORMATION
  Report Type: Spontaneous
  Country: US (occurrence: US)
  Receive Date: 20190619
  Receipt Date: 20190619
  Transmission Date: 20190711
  Serious: No
  Sender: FDA-Public Use
  Company Number: US-ROCHE-2277660

PATIENT
  Sex: Female

DRUGS (6)
  1. XELJANZ [Concomitant]
     Active Substance: TOFACITINIB CITRATE
     Route: 048
  2. SULFASALAZINE. [Concomitant]
     Active Substance: SULFASALAZINE
  3. ACTEMRA [Suspect]
     Active Substance: TOCILIZUMAB
     Indication: PRODUCT USED FOR UNKNOWN INDICATION
     Route: 065
  4. PLAQUENIL [Concomitant]
     Active Substance: HYDROXYCHLOROQUINE SULFATE
  5. ENBREL [Concomitant]
     Active Substance: ETANERCEPT
  6. SIMPONI [Concomitant]
     Active Substance: GOLIMUMAB

REACTIONS (2)
  - Drug ineffective [Unknown]
  - No adverse event [Unknown]
